FAERS Safety Report 19438176 (Version 2)
Quarter: 2021Q3

REPORT INFORMATION
  Report Type: Spontaneous
  Country: CN (occurrence: CN)
  Receive Date: 20210619
  Receipt Date: 20210709
  Transmission Date: 20211014
  Serious: Yes (Death, Other)
  Sender: FDA-Public Use
  Company Number: CN-JIANGSU HENGRUI MEDICINE CO., LTD.-2112885

PATIENT
  Age: 55 Year
  Sex: Female

DRUGS (3)
  1. CAMRELIZUMAB FOR INJECTION [Suspect]
     Active Substance: CAMRELIZUMAB
     Route: 041
     Dates: start: 20210423, end: 20210511
  2. NEDAPLATIN [Suspect]
     Active Substance: NEDAPLATIN
     Route: 041
     Dates: start: 20210423, end: 20210512
  3. DOCETAXEL INJECTION USP, 20 MG/1 ML, 80 MG/4 ML, AND 160 MG/8 ML (20 M [Suspect]
     Active Substance: DOCETAXEL
     Indication: SQUAMOUS CELL CARCINOMA OF THE CERVIX
     Route: 041
     Dates: start: 20210423, end: 20210512

REACTIONS (5)
  - Immune-mediated myocarditis [Fatal]
  - Immune-mediated hepatitis [Recovering/Resolving]
  - Immune-mediated myositis [Recovering/Resolving]
  - Respiratory failure [Fatal]
  - Product use in unapproved indication [Unknown]

NARRATIVE: CASE EVENT DATE: 20210423
